FAERS Safety Report 11855227 (Version 1)
Quarter: 2015Q4

REPORT INFORMATION
  Report Type: Spontaneous
  Country: TR (occurrence: TR)
  Receive Date: 20151221
  Receipt Date: 20151221
  Transmission Date: 20160305
  Serious: Yes (Death, Hospitalization, Other)
  Sender: FDA-Public Use
  Company Number: TR-ACTAVIS-2015-15865

PATIENT
  Age: 56 Year
  Sex: Male

DRUGS (1)
  1. PROPYLTHIOURACIL (UNKNOWN) [Suspect]
     Active Substance: PROPYLTHIOURACIL
     Indication: HYPERTHYROIDISM
     Dosage: 800 MG, DAILY, AT 8H INTERVAL
     Route: 065

REACTIONS (1)
  - Neutropenic colitis [Fatal]
